FAERS Safety Report 23044817 (Version 5)
Quarter: 2024Q1

REPORT INFORMATION
  Report Type: Spontaneous
  Country: US (occurrence: US)
  Receive Date: 20231009
  Receipt Date: 20240306
  Transmission Date: 20240409
  Serious: No
  Sender: FDA-Public Use
  Company Number: US-PFIZER INC-PV202200054120

PATIENT
  Age: 66 Year
  Sex: Female

DRUGS (9)
  1. XELJANZ XR [Suspect]
     Active Substance: TOFACITINIB CITRATE
     Indication: Autoimmune disorder
     Dosage: UNK
     Dates: start: 2021
  2. XELJANZ XR [Suspect]
     Active Substance: TOFACITINIB CITRATE
     Indication: Rheumatoid arthritis
  3. PHENERGAN [Concomitant]
     Active Substance: PROMETHAZINE HYDROCHLORIDE
  4. .ALPHA.-TOCOPHEROL [Concomitant]
     Active Substance: .ALPHA.-TOCOPHEROL
  5. CYMBALTA [Concomitant]
     Active Substance: DULOXETINE HYDROCHLORIDE
  6. LUNESTA [Concomitant]
     Active Substance: ESZOPICLONE
  7. HAIR SKIN NAILS [Concomitant]
  8. XANAX [Concomitant]
     Active Substance: ALPRAZOLAM
  9. FLEXERIL [Concomitant]
     Active Substance: CYCLOBENZAPRINE HYDROCHLORIDE

REACTIONS (6)
  - Pain in extremity [Recovered/Resolved]
  - Off label use [Unknown]
  - Gastrooesophageal reflux disease [Recovered/Resolved]
  - Pain [Recovered/Resolved]
  - Muscle disorder [Recovered/Resolved]
  - Nausea [Unknown]
